FAERS Safety Report 6924374-2 (Version None)
Quarter: 2010Q3

REPORT INFORMATION
  Report Type: 
  Country: None (occurrence: None)
  Receive Date: 20100811
  Receipt Date: 20100811
  Transmission Date: 20110219
  Serious: Yes (Hospitalization)
  Sender: FDA-Public Use
  Company Number: None

PATIENT
  Sex: Female
  Weight: 68.0396 kg

DRUGS (4)
  1. CYMBALTA [Suspect]
     Indication: DEPRESSION
     Dosage: 30MG DELAYED RELEASE  ONE TABLET PER DAY BY MOUTH
     Route: 048
     Dates: start: 20100701
  2. CYMBALTA [Suspect]
     Indication: PAIN
     Dosage: 30MG DELAYED RELEASE  ONE TABLET PER DAY BY MOUTH
     Route: 048
     Dates: start: 20100701
  3. CYMBALTA [Suspect]
     Indication: DEPRESSION
     Dosage: 30MG DELAYED RELEASE  ONE TABLET PER DAY BY MOUTH
     Route: 048
     Dates: start: 20100708
  4. CYMBALTA [Suspect]
     Indication: PAIN
     Dosage: 30MG DELAYED RELEASE  ONE TABLET PER DAY BY MOUTH
     Route: 048
     Dates: start: 20100708

REACTIONS (4)
  - DYSURIA [None]
  - GAIT DISTURBANCE [None]
  - MUSCLE CONTRACTIONS INVOLUNTARY [None]
  - SEROTONIN SYNDROME [None]
